FAERS Safety Report 20008765 (Version 1)
Quarter: 2021Q4

REPORT INFORMATION
  Report Type: Spontaneous
  Country: US (occurrence: US)
  Receive Date: 20211029
  Receipt Date: 20211029
  Transmission Date: 20220303
  Serious: Yes (Hospitalization)
  Sender: FDA-Public Use
  Company Number: US-APOTEX-2021AP044717

PATIENT
  Age: 38 Year
  Sex: Female

DRUGS (2)
  1. LEVETIRACETAM [Suspect]
     Active Substance: LEVETIRACETAM
     Indication: Seizure
     Dosage: 100-200 PILLS
     Route: 048
  2. DIVALPROEX SODIUM [Suspect]
     Active Substance: DIVALPROEX SODIUM
     Indication: Seizure
     Dosage: 100-200 PILLS
     Route: 048

REACTIONS (7)
  - Intentional overdose [Unknown]
  - Intentional product use issue [Unknown]
  - Neurological examination abnormal [Unknown]
  - Anticonvulsant drug level increased [Recovered/Resolved]
  - Hypotension [Unknown]
  - Hyperammonaemia [Recovering/Resolving]
  - Somnolence [Unknown]
